FAERS Safety Report 25420168 (Version 1)
Quarter: 2025Q2

REPORT INFORMATION
  Report Type: Spontaneous
  Country: US (occurrence: US)
  Receive Date: 20250610
  Receipt Date: 20250610
  Transmission Date: 20250716
  Serious: No
  Sender: ALEXION PHARMACEUTICALS
  Company Number: US-AstraZeneca-CH-00887152AP

PATIENT

DRUGS (1)
  1. FASENRA [Suspect]
     Active Substance: BENRALIZUMAB
     Route: 065

REACTIONS (6)
  - Medication error [Unknown]
  - Wrong device used [Unknown]
  - Dyspnoea [Unknown]
  - Overweight [Unknown]
  - Needle issue [Unknown]
  - Incorrect dose administered [Unknown]
